FAERS Safety Report 11319938 (Version 1)
Quarter: 2015Q3

REPORT INFORMATION
  Report Type: Report from Study
  Country: DE (occurrence: DE)
  Receive Date: 20150729
  Receipt Date: 20150729
  Transmission Date: 20151125
  Serious: Yes (Hospitalization)
  Sender: FDA-Public Use
  Company Number: DE-BIOGENIDEC-2015BI104412

PATIENT
  Age: 33 Year
  Sex: Female
  Weight: 83 kg

DRUGS (1)
  1. PLEGRIDY [Suspect]
     Active Substance: PEGINTERFERON BETA-1A
     Indication: MULTIPLE SCLEROSIS
     Route: 058
     Dates: start: 20141220, end: 20150704

REACTIONS (3)
  - Multiple sclerosis relapse [Unknown]
  - Hypoaesthesia [Not Recovered/Not Resolved]
  - Bladder dysfunction [Recovered/Resolved]

NARRATIVE: CASE EVENT DATE: 20150501
